FAERS Safety Report 22077374 (Version 1)
Quarter: 2023Q1

REPORT INFORMATION
  Report Type: Spontaneous
  Country: US (occurrence: US)
  Receive Date: 20230309
  Receipt Date: 20230309
  Transmission Date: 20230418
  Serious: No
  Sender: FDA-Public Use
  Company Number: US-HORIZON THERAPEUTICS-HZN-2022-004596

PATIENT

DRUGS (1)
  1. PENNSAID [Suspect]
     Active Substance: DICLOFENAC SODIUM
     Indication: Arthralgia
     Dosage: FIRST DOSE, TWICE A DAY (BID)
     Route: 065
     Dates: start: 202204

REACTIONS (2)
  - Device defective [Unknown]
  - Incorrect dose administered [Unknown]
